FAERS Safety Report 22237953 (Version 2)
Quarter: 2023Q2

REPORT INFORMATION
  Report Type: Report from Study
  Country: US (occurrence: None)
  Receive Date: 20230421
  Receipt Date: 20230620
  Transmission Date: 20230721
  Serious: Yes (Death, Hospitalization, Other)
  Sender: FDA-Public Use
  Company Number: 2023A089191

PATIENT
  Age: 35278 Day
  Sex: Female

DRUGS (1)
  1. SYMBICORT [Suspect]
     Active Substance: BUDESONIDE\FORMOTEROL FUMARATE DIHYDRATE
     Indication: Asthma
     Dosage: 160/4.5, 2 PUFFS AM 2 PUFFS PM
     Route: 055
     Dates: start: 1992, end: 20230408

REACTIONS (3)
  - Death [Fatal]
  - Fall [Unknown]
  - Malaise [Unknown]

NARRATIVE: CASE EVENT DATE: 20230408
